FAERS Safety Report 11516382 (Version 4)
Quarter: 2016Q1

REPORT INFORMATION
  Report Type: Spontaneous
  Country: US (occurrence: US)
  Receive Date: 20150917
  Receipt Date: 20160303
  Transmission Date: 20160525
  Serious: Yes (Hospitalization)
  Sender: FDA-Public Use
  Company Number: US-PFIZER INC-2015299117

PATIENT
  Age: 54 Year
  Sex: Female
  Weight: 63.39 kg

DRUGS (6)
  1. SUTENT [Suspect]
     Active Substance: SUNITINIB MALATE
     Indication: RENAL CELL CARCINOMA
     Dosage: 37 MG, 1X/DAY
     Route: 048
     Dates: start: 201505
  2. SUTENT [Suspect]
     Active Substance: SUNITINIB MALATE
     Dosage: 50 MG, UNK
     Route: 048
     Dates: start: 20150823
  3. SUTENT [Suspect]
     Active Substance: SUNITINIB MALATE
     Dosage: 37.5 MG, UNK
     Route: 048
  4. LEVOTHYROXINE. [Concomitant]
     Active Substance: LEVOTHYROXINE
     Dosage: UNK
     Dates: start: 2005
  5. NITROFURANTOIN. [Concomitant]
     Active Substance: NITROFURANTOIN
     Dosage: UNK
  6. LISINOPRIL/HCTZ [Concomitant]
     Active Substance: HYDROCHLOROTHIAZIDE\LISINOPRIL
     Dosage: UNK
     Dates: start: 2012

REACTIONS (9)
  - Oral pain [Not Recovered/Not Resolved]
  - Pruritus [Not Recovered/Not Resolved]
  - Myalgia [Not Recovered/Not Resolved]
  - Diarrhoea [Recovered/Resolved]
  - Computerised tomogram abnormal [Unknown]
  - Pain [Not Recovered/Not Resolved]
  - Nausea [Unknown]
  - Dry skin [Not Recovered/Not Resolved]
  - Vomiting [Unknown]
